FAERS Safety Report 13013025 (Version 2)
Quarter: 2017Q1

REPORT INFORMATION
  Report Type: Spontaneous
  Country: DE (occurrence: DE)
  Receive Date: 20161209
  Receipt Date: 20170117
  Transmission Date: 20170428
  Serious: Yes (Life-Threatening, Hospitalization, Disabling, Other)
  Sender: FDA-Public Use
  Company Number: DE-BAYER-2016-227856

PATIENT
  Age: 80 Year
  Sex: Male

DRUGS (2)
  1. XOFIGO [Suspect]
     Active Substance: RADIUM RA-223 DICHLORIDE
     Indication: METASTASES TO BONE
  2. XOFIGO [Suspect]
     Active Substance: RADIUM RA-223 DICHLORIDE
     Indication: PROSTATE CANCER
     Dosage: UNK
     Dates: start: 201510, end: 201603

REACTIONS (10)
  - Asthenia [None]
  - Decreased appetite [None]
  - Dry mouth [None]
  - Lumbar vertebral fracture [None]
  - Fatigue [None]
  - Back pain [None]
  - Anaemia [None]
  - Dysgeusia [None]
  - Weight decreased [None]
  - Skin odour abnormal [None]
